FAERS Safety Report 8554152-2 (Version None)
Quarter: 2012Q3

REPORT INFORMATION
  Report Type: 
  Country: None (occurrence: None)
  Receive Date: 20120731
  Receipt Date: 20120727
  Transmission Date: 20120928
  Serious: Yes (Life-Threatening, Hospitalization, Disabling, Other)
  Sender: FDA-Public Use
  Company Number: PHHY2010JP05882

PATIENT
  Sex: Male

DRUGS (31)
  1. LASIX [Concomitant]
     Indication: RENAL FAILURE CHRONIC
     Dosage: 10 MG, UNK
     Route: 048
  2. LASIX [Concomitant]
     Dosage: 20 MG, UNK
     Route: 042
     Dates: start: 20100914, end: 20100924
  3. LASIX [Concomitant]
     Dosage: 20 MG, UNK
  4. CEFTAZIDIME SODIUM [Concomitant]
     Dosage: 2 G, UNK
     Route: 042
     Dates: start: 20110418, end: 20110502
  5. TASIGNA [Suspect]
     Dosage: 200 MG, DAILY
     Route: 048
     Dates: start: 20101004, end: 20110130
  6. TASIGNA [Suspect]
     Dosage: 600 MG, DAILY
     Route: 048
     Dates: start: 20110307, end: 20110412
  7. TASIGNA [Suspect]
     Dosage: 200 MG, DAILY
     Route: 048
     Dates: start: 20110628
  8. LOSARTAN POTASSIUM [Concomitant]
     Indication: HYPERTENSION
     Dosage: 2.5 MG, UNK
     Route: 048
  9. PENTAZOCINE LACTATE [Concomitant]
     Dosage: 25 MG, UNK
     Route: 048
     Dates: start: 20100506
  10. TASIGNA [Suspect]
     Dosage: 400 MG, DAILY
     Route: 048
     Dates: start: 20091110, end: 20100222
  11. NORVASC [Concomitant]
     Indication: HYPERTENSION
     Dosage: 7.5 MG, UNK
     Route: 048
  12. ALLOPURINOL [Concomitant]
     Indication: HYPERURICAEMIA
     Dosage: 1 DF, UNK
     Route: 048
  13. RIVOTRIL [Concomitant]
     Dosage: 0.5 MG, UNK
     Route: 048
     Dates: start: 20100515, end: 20100910
  14. DIAZEPAM [Concomitant]
     Dosage: 10 MG, UNK
     Dates: start: 20100919
  15. AMIKACIN SULFATE [Concomitant]
     Dosage: 300 MG, UNK
     Dates: start: 20110417, end: 20110424
  16. TASIGNA [Suspect]
     Indication: CHRONIC MYELOID LEUKAEMIA
     Dosage: 400 MG, DAILY
     Route: 048
     Dates: start: 20090525, end: 20090809
  17. TASIGNA [Suspect]
     Dosage: 600 MG, DAILY
     Route: 048
     Dates: start: 20090810, end: 20091025
  18. TASIGNA [Suspect]
     Dosage: 800 MG, DAILY
     Route: 048
     Dates: start: 20091026, end: 20091107
  19. TASIGNA [Suspect]
     Dosage: 600 MG, DAILY
     Route: 048
     Dates: start: 20100906, end: 20100916
  20. TASIGNA [Suspect]
     Dosage: 400 MG, DAILY
     Route: 048
     Dates: start: 20110131, end: 20110306
  21. BEZATOL - SLOW RELEASE [Concomitant]
     Indication: HYPERLIPIDAEMIA
     Dosage: 400 MG, UNK
     Route: 048
  22. ACETAMINOPHEN [Concomitant]
     Dosage: 500 MG, UNK
     Route: 048
     Dates: start: 20100428
  23. HANP [Concomitant]
     Dosage: 2 MG, UNK
     Route: 042
  24. TASIGNA [Suspect]
     Dosage: 600 MG, DAILY
     Route: 048
     Dates: start: 20100223
  25. WARFARIN SODIUM [Concomitant]
     Dosage: 2 MG, QD
     Dates: start: 20090915
  26. MEROPENEM [Concomitant]
     Dosage: 2 G, UNK
     Route: 042
     Dates: start: 20110413, end: 20110417
  27. EPLERENONE [Concomitant]
     Indication: HYPERTENSION
     Dosage: 25 MG, UNK
     Route: 048
     Dates: start: 20090331, end: 20100430
  28. FOLIC ACID [Concomitant]
     Dosage: 2 DF, UNK
     Route: 048
     Dates: start: 20100506, end: 20100610
  29. TASIGNA [Suspect]
     Dosage: 600 MG, DAILY
     Route: 048
     Dates: start: 20100628, end: 20100711
  30. TASIGNA [Suspect]
     Dosage: 800 MG, DAILY
     Route: 048
     Dates: start: 20100712, end: 20100905
  31. WARFARIN SODIUM [Concomitant]
     Indication: ATRIAL FIBRILLATION
     Dosage: 1.5 MG, UNK
     Route: 048

REACTIONS (25)
  - PROTHROMBIN TIME RATIO INCREASED [None]
  - HYPOTHYROIDISM [None]
  - PLEURAL EFFUSION [None]
  - PSEUDOMONAS INFECTION [None]
  - MOVEMENT DISORDER [None]
  - HYPOPHOSPHATAEMIA [None]
  - OEDEMA PERIPHERAL [None]
  - PAIN IN EXTREMITY [None]
  - MUSCLE SPASMS [None]
  - DECREASED APPETITE [None]
  - CARDIAC FAILURE CONGESTIVE [None]
  - GASTROINTESTINAL HAEMORRHAGE [None]
  - ATRIAL FIBRILLATION [None]
  - PYREXIA [None]
  - BLOOD PRESSURE DECREASED [None]
  - PULMONARY CONGESTION [None]
  - MALAISE [None]
  - GAIT DISTURBANCE [None]
  - GLOSSOPTOSIS [None]
  - MUSCULAR WEAKNESS [None]
  - WHEEZING [None]
  - ANAEMIA [None]
  - SEPTIC SHOCK [None]
  - RENAL FAILURE ACUTE [None]
  - DYSCHEZIA [None]
